FAERS Safety Report 4620941-X (Version None)
Quarter: 2005Q1

REPORT INFORMATION
  Report Type: 
  Country: None (occurrence: None)
  Receive Date: 20050325
  Receipt Date: 20050306
  Transmission Date: 20050727
  Serious: Yes (Hospitalization)
  Sender: FDA-Public Use
  Company Number: A01200501419

PATIENT
  Age: 69 Year
  Sex: Male

DRUGS (1)
  1. XATRAL - SLOW RELEASE - (ALFUZOSIN HYDROCHLORIDE) - TABLET PR - 10 MG [Suspect]
     Indication: BENIGN PROSTATIC HYPERPLASIA
     Dosage: 10 MG OD, ORAL
     Route: 048
     Dates: start: 20010101, end: 20050308

REACTIONS (1)
  - ACUTE CORONARY SYNDROME [None]
